FAERS Safety Report 15876791 (Version 1)
Quarter: 2019Q1

REPORT INFORMATION
  Report Type: Report from Study
  Country: None (occurrence: US)
  Receive Date: 20190127
  Receipt Date: 20190127
  Transmission Date: 20190417
  Serious: Yes (Other)
  Sender: FDA-Public Use
  Company Number: US-ABBVIE-18K-163-2372526-00

PATIENT
  Age: 72 Year
  Sex: Female

DRUGS (3)
  1. HUMIRA [Suspect]
     Active Substance: ADALIMUMAB
     Indication: RHEUMATOID ARTHRITIS
     Route: 058
  2. HUMIRA [Suspect]
     Active Substance: ADALIMUMAB
     Route: 058
  3. HUMIRA [Suspect]
     Active Substance: ADALIMUMAB
     Dosage: DOSE DOUBLED UP
     Route: 058

REACTIONS (13)
  - Pharyngeal erythema [Unknown]
  - Musculoskeletal stiffness [Unknown]
  - Nephrolithiasis [Recovered/Resolved]
  - Bladder obstruction [Unknown]
  - Fatigue [Unknown]
  - Nephrolithiasis [Unknown]
  - Bronchitis [Unknown]
  - Blood pressure increased [Unknown]
  - Energy increased [Unknown]
  - Temperature intolerance [Unknown]
  - Blood phosphorus decreased [Unknown]
  - Therapeutic response shortened [Unknown]
  - Arthralgia [Unknown]

NARRATIVE: CASE EVENT DATE: 201808
